FAERS Safety Report 4540910-8 (Version None)
Quarter: 2004Q4

REPORT INFORMATION
  Report Type: 
  Country: None (occurrence: None)
  Receive Date: 20041229
  Receipt Date: 20040810
  Transmission Date: 20050328
  Serious: Yes (Hospitalization, Disabling)
  Sender: FDA-Public Use
  Company Number: GB-GLAXOSMITHKLINE-B0342013A

PATIENT
  Age: 66 Year
  Sex: Male
  Weight: 65 kg

DRUGS (4)
  1. PAROXETINE HYDROCHLORIDE [Suspect]
     Indication: DEPRESSION
     Dosage: 20MG PER DAY
     Route: 048
     Dates: start: 20010813, end: 20040809
  2. BECLOMETHASONE DIPROPIONATE [Concomitant]
     Indication: ASTHMA
     Dosage: 250UG TWICE PER DAY
     Route: 055
     Dates: start: 19890101
  3. ALBUTEROL [Concomitant]
     Dosage: 100UG TWICE PER DAY
     Route: 055
     Dates: start: 19890101
  4. SALMETEROL [Concomitant]
     Dosage: 25UG TWICE PER DAY
     Route: 055
     Dates: start: 19890101

REACTIONS (6)
  - DIFFICULTY IN WALKING [None]
  - DIPLOPIA [None]
  - HYPERREFLEXIA [None]
  - MYOCLONUS [None]
  - SEROTONIN SYNDROME [None]
  - SPEECH DISORDER [None]
